FAERS Safety Report 9404299 (Version 1)
Quarter: 2013Q3

REPORT INFORMATION
  Report Type: Spontaneous
  Country: CN (occurrence: CN)
  Receive Date: 20130717
  Receipt Date: 20130717
  Transmission Date: 20140515
  Serious: Yes (Other)
  Sender: FDA-Public Use
  Company Number: CN-BAYER-2013-085441

PATIENT
  Age: 87 Year
  Sex: Male
  Weight: 74 kg

DRUGS (1)
  1. AVELOX [Suspect]
     Dosage: 0.4 G, QD
     Route: 048

REACTIONS (1)
  - Left ventricular failure [Recovering/Resolving]
